FAERS Safety Report 5736201-X (Version None)
Quarter: 2008Q2

REPORT INFORMATION
  Report Type: 
  Country: None (occurrence: None)
  Receive Date: 20080509
  Receipt Date: 20080509
  Transmission Date: 20081010
  Serious: Yes (Other)
  Sender: FDA-Public Use
  Company Number: None

PATIENT
  Sex: Female
  Weight: 68.0396 kg

DRUGS (1)
  1. CREST PRO HEALTH MOUTHWASH/RINSE PROCTOR GAMBLE [Suspect]
     Indication: DENTAL DISORDER PROPHYLAXIS
     Dosage: ROUTINE TWICE A DAY DENTAL
     Route: 004
     Dates: start: 20060131, end: 20080507

REACTIONS (1)
  - TOOTH DISCOLOURATION [None]
